FAERS Safety Report 12886351 (Version 1)
Quarter: 2016Q4

REPORT INFORMATION
  Report Type: Report from Study
  Country: US (occurrence: US)
  Receive Date: 20161026
  Receipt Date: 20161026
  Transmission Date: 20170207
  Serious: Yes (Hospitalization, Other)
  Sender: FDA-Public Use
  Company Number: US-BAYER-2016-141550

PATIENT
  Age: 51 Year
  Sex: Female
  Weight: 72.56 kg

DRUGS (10)
  1. ADEMPAS [Suspect]
     Active Substance: RIOCIGUAT
     Indication: PULMONARY HYPERTENSION
     Dosage: 1.5 MG, TID
     Route: 048
  2. APIXABAN [Concomitant]
     Active Substance: APIXABAN
     Dosage: UNK
  3. ADEMPAS [Suspect]
     Active Substance: RIOCIGUAT
     Indication: PULMONARY HYPERTENSION
     Dosage: UNK
     Dates: start: 20160617
  4. ADEMPAS [Suspect]
     Active Substance: RIOCIGUAT
     Indication: PULMONARY HYPERTENSION
     Dosage: 1 MG, TID
  5. ADEMPAS [Suspect]
     Active Substance: RIOCIGUAT
     Indication: PULMONARY HYPERTENSION
     Dosage: 2 MG, TID
     Route: 048
  6. ADEMPAS [Suspect]
     Active Substance: RIOCIGUAT
     Indication: PULMONARY HYPERTENSION
     Dosage: 2 MG, TID
     Route: 048
  7. ADEMPAS [Suspect]
     Active Substance: RIOCIGUAT
     Indication: PULMONARY HYPERTENSION
     Dosage: 1.5 MG, TID
     Route: 048
  8. ADEMPAS [Suspect]
     Active Substance: RIOCIGUAT
     Indication: PULMONARY HYPERTENSION
     Dosage: 1.5 MG, TID
     Route: 048
  9. ADEMPAS [Suspect]
     Active Substance: RIOCIGUAT
     Indication: PULMONARY HYPERTENSION
     Dosage: 2 MG, TID
     Route: 048
  10. TYVASO [Concomitant]
     Active Substance: TREPROSTINIL
     Dosage: 6-BREATHS 4 TIMES

REACTIONS (22)
  - Intestinal obstruction [Unknown]
  - Malaise [Unknown]
  - Diarrhoea [Unknown]
  - Hypotension [Unknown]
  - Cough [Recovered/Resolved]
  - Scar [Unknown]
  - Blood pressure decreased [Recovering/Resolving]
  - Constipation [Unknown]
  - Vomiting [Recovered/Resolved]
  - Chest discomfort [None]
  - Tachycardia [Unknown]
  - Nausea [Recovered/Resolved]
  - Hypotension [Unknown]
  - Gastrooesophageal reflux disease [Unknown]
  - Nausea [Unknown]
  - Vomiting [Unknown]
  - Urinary tract infection [Unknown]
  - Dizziness [Recovered/Resolved]
  - Pulmonary hypertension [Unknown]
  - Hospitalisation [Unknown]
  - Chest discomfort [None]
  - Headache [Unknown]

NARRATIVE: CASE EVENT DATE: 201607
